FAERS Safety Report 13596501 (Version 1)
Quarter: 2017Q2

REPORT INFORMATION
  Report Type: Spontaneous
  Country: US (occurrence: US)
  Receive Date: 20170531
  Receipt Date: 20170531
  Transmission Date: 20170830
  Serious: No
  Sender: FDA-Public Use
  Company Number: US-TEVA-771347ACC

PATIENT
  Age: 53 Year
  Sex: Male

DRUGS (12)
  1. BACLOFEN. [Concomitant]
     Active Substance: BACLOFEN
  2. METOPROLOL. [Concomitant]
     Active Substance: METOPROLOL
  3. ACETAMINPHEN [Concomitant]
  4. AMPYRA [Concomitant]
     Active Substance: DALFAMPRIDINE
  5. SIMVASTATIN. [Concomitant]
     Active Substance: SIMVASTATIN
  6. ZETIA [Concomitant]
     Active Substance: EZETIMIBE
  7. OMEPRAZOLE. [Concomitant]
     Active Substance: OMEPRAZOLE
  8. GLUCOSAMINE [Concomitant]
     Active Substance: GLUCOSAMINE
  9. VASCEPA [Concomitant]
     Active Substance: ICOSAPENT ETHYL
  10. COPAXONE [Suspect]
     Active Substance: GLATIRAMER ACETATE
     Indication: MULTIPLE SCLEROSIS
     Route: 058
     Dates: start: 20160305
  11. MULTIVITAMINS [Concomitant]
     Active Substance: VITAMINS
  12. DICLOFEN [Concomitant]
     Active Substance: DICLOFENAC SODIUM

REACTIONS (1)
  - Injection site pain [Not Recovered/Not Resolved]

NARRATIVE: CASE EVENT DATE: 20170427
